FAERS Safety Report 9210991 (Version 1)
Quarter: 2013Q2

REPORT INFORMATION
  Report Type: Spontaneous
  Country: JP (occurrence: JP)
  Receive Date: 20130404
  Receipt Date: 20130404
  Transmission Date: 20140414
  Serious: Yes (Hospitalization, Other)
  Sender: FDA-Public Use
  Company Number: JP-B.I. PHARMACEUTICALS,INC./RIDGEFIELD-2012-BP-03400NB

PATIENT
  Age: 89 Year
  Sex: Male
  Weight: 41 kg

DRUGS (8)
  1. PRAZAXA [Suspect]
     Dosage: 220 MG
     Route: 048
     Dates: start: 20110613, end: 20120130
  2. HALFDIGOXIN [Concomitant]
     Dosage: 0.125 MG
     Route: 065
     Dates: start: 20090619
  3. PRAVASTATIN NA [Concomitant]
     Dosage: 10 MG
     Route: 065
     Dates: start: 20090619
  4. PARIET [Concomitant]
     Dosage: 10 MG
     Route: 065
     Dates: start: 20090619
  5. UROSULOL [Concomitant]
     Dosage: 0.2 MG
     Route: 065
     Dates: start: 20090619, end: 20120130
  6. MICARDIS [Concomitant]
     Dosage: 20 MG
     Route: 065
     Dates: start: 20110603
  7. BIOFERMIN [Concomitant]
     Route: 065
     Dates: start: 201107
  8. SENNAL [Concomitant]
     Dosage: 24 MG
     Route: 065
     Dates: start: 201108

REACTIONS (1)
  - Platelet count decreased [Recovered/Resolved]
